FAERS Safety Report 5417731-7 (Version None)
Quarter: 2007Q3

REPORT INFORMATION
  Report Type: 
  Country: None (occurrence: None)
  Receive Date: 20070815
  Receipt Date: 20070815
  Transmission Date: 20080115
  Serious: Yes (Hospitalization)
  Sender: FDA-Public Use
  Company Number: None

PATIENT
  Sex: Female
  Weight: 53.0709 kg

DRUGS (5)
  1. RELPAX [Suspect]
     Indication: MIGRAINE
     Dosage: 40MG PO
     Route: 048
     Dates: start: 20061016
  2. INDERAL [Concomitant]
  3. LEVOTHYROXINE SODIUM [Concomitant]
  4. ESTRADIOL [Concomitant]
  5. DICYCLOMINE [Concomitant]

REACTIONS (8)
  - CARDIAC DISORDER [None]
  - CEREBRAL HYPOPERFUSION [None]
  - CEREBRAL VASOCONSTRICTION [None]
  - CONFUSIONAL STATE [None]
  - DISORIENTATION [None]
  - HYPOPERFUSION [None]
  - VASOCONSTRICTION [None]
  - VOMITING [None]
